FAERS Safety Report 7486871-3 (Version None)
Quarter: 2011Q2

REPORT INFORMATION
  Report Type: 
  Country: None (occurrence: None)
  Receive Date: 20110517
  Receipt Date: 20110510
  Transmission Date: 20111010
  Serious: Yes (Other)
  Sender: FDA-Public Use
  Company Number: US-US-EMD SERONO, INC.-7052270

PATIENT
  Sex: Female
  Weight: 8 kg

DRUGS (2)
  1. SAIZEN [Suspect]
     Indication: HYPOPITUITARISM
     Route: 058
     Dates: start: 20110330, end: 20110510
  2. SAIZEN [Suspect]
     Indication: SMALL FOR DATES BABY

REACTIONS (3)
  - ALOPECIA [None]
  - BREATH HOLDING [None]
  - CONVULSION [None]
